FAERS Safety Report 8239726-0 (Version None)
Quarter: 2012Q1

REPORT INFORMATION
  Report Type: 
  Country: None (occurrence: None)
  Receive Date: 20120328
  Receipt Date: 20120322
  Transmission Date: 20120608
  Serious: Yes (Life-Threatening, Disabling)
  Sender: FDA-Public Use
  Company Number: JP-GE HEALTHCARE MEDICAL DIAGNOSTICS-OSCN-NO-0705S-0215

PATIENT
  Sex: Male

DRUGS (4)
  1. OMNISCAN [Suspect]
     Indication: RENAL TRANSPLANT
     Route: 042
     Dates: start: 20000718, end: 20000718
  2. MULTIPLE UNSPECIFIED DRUGS [Concomitant]
  3. OMNISCAN [Suspect]
     Indication: ANASTOMOTIC STENOSIS
  4. MAGNEVIST [Concomitant]
     Indication: INTRACRANIAL ANEURYSM
     Route: 042
     Dates: start: 20010618, end: 20010618

REACTIONS (16)
  - MUSCULAR WEAKNESS [None]
  - MORPHOEA [None]
  - CALCINOSIS [None]
  - ARTERIOVENOUS FISTULA SITE COMPLICATION [None]
  - PAIN IN EXTREMITY [None]
  - OEDEMA PERIPHERAL [None]
  - JOINT CONTRACTURE [None]
  - PAIN [None]
  - NEPHROGENIC SYSTEMIC FIBROSIS [None]
  - SCLEREMA [None]
  - GAIT DISTURBANCE [None]
  - SKIN DISCOLOURATION [None]
  - SKIN INDURATION [None]
  - FEELING HOT [None]
  - JOINT RANGE OF MOTION DECREASED [None]
  - SKIN DISORDER [None]
